FAERS Safety Report 8580349-1 (Version None)
Quarter: 2012Q3

REPORT INFORMATION
  Report Type: 
  Country: None (occurrence: None)
  Receive Date: 20120808
  Receipt Date: 20120105
  Transmission Date: 20120928
  Serious: Yes (Other)
  Sender: FDA-Public Use
  Company Number: CO-PFIZER INC-2012189307

PATIENT
  Age: 70 Year
  Sex: Male

DRUGS (5)
  1. METFORMIN [Concomitant]
     Dosage: 850 MG EVERY 24 HOURS
  2. LOSARTAN [Concomitant]
     Dosage: 50 MG EVERY 24 HOURS
  3. METOPROLOL TARTRATE [Concomitant]
     Dosage: 50 MG EVERY 24 HOURS
  4. LIPITOR [Suspect]
     Indication: DYSLIPIDAEMIA
     Dosage: 20 MG EVERY 24 HOURS
  5. ASPIRIN [Concomitant]
     Dosage: 100 MG EVERY 24 HOURS

REACTIONS (2)
  - OEDEMA PERIPHERAL [None]
  - RENAL FAILURE CHRONIC [None]
